FAERS Safety Report 21712825 (Version 3)
Quarter: 2022Q4

REPORT INFORMATION
  Report Type: Spontaneous
  Country: US (occurrence: US)
  Receive Date: 20221212
  Receipt Date: 20221227
  Transmission Date: 20230113
  Serious: Yes (Other)
  Sender: FDA-Public Use
  Company Number: US-LEO Pharma-346922

PATIENT
  Sex: Female

DRUGS (9)
  1. ADBRY [Suspect]
     Active Substance: TRALOKINUMAB-LDRM
     Indication: Dermatitis
     Dosage: 4 INJECTIONS (4 SHOTS) FOR THE INITIAL DOSE PREVIOUSLY
     Route: 058
  2. ADBRY [Suspect]
     Active Substance: TRALOKINUMAB-LDRM
     Indication: Dermatitis
     Dosage: 4 INJECTIONS (4 SHOTS) FOR THE INITIAL DOSE PREVIOUSLY
     Route: 058
  3. ADBRY [Suspect]
     Active Substance: TRALOKINUMAB-LDRM
     Indication: Dermatitis
     Dosage: 2 SHOTS ON MONDAY
     Route: 058
     Dates: start: 20221107
  4. ADBRY [Suspect]
     Active Substance: TRALOKINUMAB-LDRM
     Indication: Dermatitis
     Dosage: 2 SHOTS ON MONDAY
     Route: 058
     Dates: start: 20221107
  5. ADBRY [Suspect]
     Active Substance: TRALOKINUMAB-LDRM
     Indication: Dermatitis
     Dosage: 4 INJECTIONS (4 SHOTS) FOR THE INITIAL DOSE PREVIOUSLY
     Route: 058
  6. ADBRY [Suspect]
     Active Substance: TRALOKINUMAB-LDRM
     Indication: Dermatitis
     Dosage: 4 INJECTIONS (4 SHOTS) FOR THE INITIAL DOSE PREVIOUSLY
     Route: 058
  7. ADBRY [Suspect]
     Active Substance: TRALOKINUMAB-LDRM
     Indication: Dermatitis
     Dosage: 2 SHOTS ON MONDAY
     Route: 058
     Dates: start: 20221107
  8. ADBRY [Suspect]
     Active Substance: TRALOKINUMAB-LDRM
     Indication: Dermatitis
     Dosage: 2 SHOTS ON MONDAY
     Route: 058
     Dates: start: 20221107
  9. DEVICE [Suspect]
     Active Substance: DEVICE
     Indication: Dermatitis

REACTIONS (4)
  - Pneumonia [Recovered/Resolved]
  - Scab [Unknown]
  - Rash vesicular [Unknown]
  - Rash [Recovered/Resolved]
